FAERS Safety Report 24274642 (Version 1)
Quarter: 2024Q3

REPORT INFORMATION
  Report Type: Spontaneous
  Country: JP (occurrence: JP)
  Receive Date: 20240902
  Receipt Date: 20240902
  Transmission Date: 20241016
  Serious: Yes (Other)
  Sender: SANDOZ
  Company Number: JP-MLMSERVICE-20240625-PI112000-00218-1

PATIENT
  Age: 75 Year
  Sex: Female

DRUGS (2)
  1. METHOTREXATE [Suspect]
     Active Substance: METHOTREXATE
     Indication: Rheumatoid arthritis
     Dosage: 6 MG
     Route: 065
  2. BUCILLAMINE [Concomitant]
     Active Substance: BUCILLAMINE
     Indication: Rheumatoid arthritis
     Dosage: 200 MG, FOR ~15 YEARS
     Route: 065

REACTIONS (4)
  - Hydronephrosis [Recovered/Resolved]
  - Escherichia urinary tract infection [Recovered/Resolved]
  - Bladder cancer [Recovered/Resolved]
  - Lymphoproliferative disorder [Recovered/Resolved]
